FAERS Safety Report 6508093-2 (Version None)
Quarter: 2009Q4

REPORT INFORMATION
  Report Type: 
  Country: None (occurrence: None)
  Receive Date: 20091210
  Receipt Date: 20090714
  Transmission Date: 20100525
  Serious: Yes (Other)
  Sender: FDA-Public Use
  Company Number: CIP09001603

PATIENT
  Sex: Female

DRUGS (8)
  1. ACTONEL [Suspect]
     Dosage: 150 MG ONCE MONTHLY, ORAL
     Route: 048
     Dates: start: 20090608
  2. FEMARA [Concomitant]
  3. CALTRATE /00108001/ (CALCIUM CARBONATE) [Concomitant]
  4. TOPROL-XL [Concomitant]
  5. CRESTOR [Concomitant]
  6. ZOLOFT [Concomitant]
  7. NEXIUM [Concomitant]
  8. ASPIRIN [Concomitant]

REACTIONS (14)
  - ABASIA [None]
  - ABDOMINAL DISCOMFORT [None]
  - ARTHRALGIA [None]
  - CHEST DISCOMFORT [None]
  - DYSPHAGIA [None]
  - FATIGUE [None]
  - INFLUENZA [None]
  - MALAISE [None]
  - MUSCULOSKELETAL DISCOMFORT [None]
  - MYALGIA [None]
  - PAIN [None]
  - PAIN IN EXTREMITY [None]
  - SLEEP DISORDER [None]
  - VOMITING [None]
